FAERS Safety Report 18522111 (Version 6)
Quarter: 2024Q4

REPORT INFORMATION
  Report Type: Report from Study
  Country: US (occurrence: US)
  Receive Date: 20201119
  Receipt Date: 20241125
  Transmission Date: 20250114
  Serious: Yes (Hospitalization, Other)
  Sender: TAKEDA
  Company Number: US-TAKEDA-US202009719

PATIENT
  Sex: Female

DRUGS (3)
  1. HUMAN IMMUNOGLOBULIN G [Suspect]
     Active Substance: HUMAN IMMUNOGLOBULIN G
     Indication: Selective IgG subclass deficiency
     Dosage: UNK
  2. HUMAN IMMUNOGLOBULIN G [Suspect]
     Active Substance: HUMAN IMMUNOGLOBULIN G
     Indication: Primary immunodeficiency syndrome
     Dosage: 25 GRAM, MONTHLY
  3. HUMAN IMMUNOGLOBULIN G [Suspect]
     Active Substance: HUMAN IMMUNOGLOBULIN G
     Dosage: UNK, MONTHLY

REACTIONS (15)
  - Addison^s disease [Unknown]
  - Monoplegia [Unknown]
  - Malaise [Not Recovered/Not Resolved]
  - Back pain [Unknown]
  - Transient ischaemic attack [Unknown]
  - Infection [Unknown]
  - Autonomic nervous system imbalance [Unknown]
  - Urinary tract infection [Unknown]
  - Fall [Unknown]
  - Drug hypersensitivity [Unknown]
  - Upper respiratory tract infection [Unknown]
  - Sinusitis [Unknown]
  - Fatigue [Unknown]
  - Cardiac disorder [Unknown]
  - Tremor [Not Recovered/Not Resolved]
